FAERS Safety Report 5382166-2 (Version None)
Quarter: 2007Q3

REPORT INFORMATION
  Report Type: 
  Country: None (occurrence: None)
  Receive Date: 20070709
  Receipt Date: 20070706
  Transmission Date: 20080115
  Serious: Yes (Hospitalization)
  Sender: FDA-Public Use
  Company Number: US-SANOFI-SYNTHELABO-F01200700492

PATIENT
  Sex: Female
  Weight: 65.9 kg

DRUGS (9)
  1. BEVACIZUMAB [Suspect]
     Route: 042
     Dates: start: 20070402, end: 20070402
  2. LEUCOVORIN CALCIUM [Suspect]
     Route: 042
     Dates: start: 20070402, end: 20070402
  3. FLUOROURACIL [Suspect]
     Dosage: 2400 MG/M2 IV ON DAY 1 AND DAY 2, Q2W
     Route: 042
     Dates: start: 20070402, end: 20070403
  4. OXALIPLATIN [Suspect]
     Indication: COLORECTAL CANCER METASTATIC
     Route: 042
     Dates: start: 20070205, end: 20070205
  5. CA/MG OR PLACEBO [Suspect]
     Route: 042
     Dates: start: 20070205, end: 20070205
  6. FERROUS SULFATE [Concomitant]
     Route: 048
  7. ZOFRAN [Concomitant]
     Route: 065
  8. COUMADIN [Concomitant]
     Route: 048
  9. ARANESP [Concomitant]
     Route: 065

REACTIONS (1)
  - CHOLECYSTITIS [None]
